FAERS Safety Report 19240897 (Version 1)
Quarter: 2021Q2

REPORT INFORMATION
  Report Type: Report from Study
  Country: GB (occurrence: GB)
  Receive Date: 20210511
  Receipt Date: 20210511
  Transmission Date: 20210717
  Serious: Yes (Death, Other)
  Sender: FDA-Public Use
  Company Number: GB-AUROBINDO-AUR-APL-2021-018540

PATIENT
  Age: 57 Year
  Sex: Male

DRUGS (6)
  1. MELPHALAN. [Suspect]
     Active Substance: MELPHALAN
     Dosage: UNK
     Route: 065
  2. MELPHALAN. [Suspect]
     Active Substance: MELPHALAN
     Indication: CHEMOTHERAPY
     Dosage: REDUCED INTENSITY CONDITIONING CHEMOTHERAPY
     Route: 065
  3. FLUDARABINE [Suspect]
     Active Substance: FLUDARABINE PHOSPHATE
     Indication: CHEMOTHERAPY
     Dosage: REDUCED INTENSITY CONDITIONING CHEMOTHERAPY
     Route: 065
  4. ACICLOVIR [Concomitant]
     Active Substance: ACYCLOVIR
     Indication: PROPHYLAXIS
     Dosage: FOR MINIMUM OF 3 MONTHS FOLLOWING TRANSPLANT
     Route: 065
  5. ALEMTUZUMAB [Suspect]
     Active Substance: ALEMTUZUMAB
     Indication: LYMPHODEPLETION
     Dosage: 10 MILLIGRAM, ONCE A DAY, FROM DAY ?3 TO DAY ?7
     Route: 042
  6. FLUDARABINE [Suspect]
     Active Substance: FLUDARABINE PHOSPHATE
     Dosage: UNK
     Route: 065

REACTIONS (3)
  - Acute myeloid leukaemia recurrent [Fatal]
  - Post transplant lymphoproliferative disorder [Recovered/Resolved]
  - Epstein-Barr virus infection reactivation [Recovered/Resolved]
